FAERS Safety Report 12407605 (Version 1)
Quarter: 2016Q2

REPORT INFORMATION
  Report Type: Spontaneous
  Country: None (occurrence: IT)
  Receive Date: 20160526
  Receipt Date: 20160526
  Transmission Date: 20160815
  Serious: Yes (Other)
  Sender: FDA-Public Use
  Company Number: IT-MERCK KGAA-1052844

PATIENT

DRUGS (1)
  1. NOVOTHYROX [Suspect]
     Active Substance: LEVOTHYROXINE SODIUM

REACTIONS (10)
  - Dysentery [None]
  - Dizziness [None]
  - Abdominal discomfort [None]
  - Helicobacter test positive [None]
  - Anaemia [None]
  - Dyspepsia [None]
  - Salivary hypersecretion [None]
  - Dysgeusia [None]
  - Intestinal intraepithelial lymphocytes increased [None]
  - Influenza [None]
